FAERS Safety Report 7641118-X (Version None)
Quarter: 2011Q3

REPORT INFORMATION
  Report Type: 
  Country: None (occurrence: None)
  Receive Date: 20110728
  Receipt Date: 20110719
  Transmission Date: 20111222
  Serious: Yes (Other)
  Sender: FDA-Public Use
  Company Number: US-UCBSA-029197

PATIENT
  Sex: Female
  Weight: 96 kg

DRUGS (1)
  1. CIMZIA [Suspect]
     Indication: CROHN'S DISEASE
     Route: 058
     Dates: start: 20081207

REACTIONS (3)
  - OEDEMA PERIPHERAL [None]
  - SKIN CANCER [None]
  - MALAISE [None]
